FAERS Safety Report 8093055-7 (Version None)
Quarter: 2012Q1

REPORT INFORMATION
  Report Type: 
  Country: None (occurrence: None)
  Receive Date: 20120128
  Receipt Date: 20110914
  Transmission Date: 20120608
  Serious: No
  Sender: FDA-Public Use
  Company Number: PR-ABBOTT-11P-131-0834484-00

PATIENT
  Sex: Female
  Weight: 111.68 kg

DRUGS (6)
  1. BUMETANIDE [Concomitant]
     Indication: FLUID RETENTION
  2. AVAPRO [Concomitant]
     Indication: HYPERTENSION
     Dosage: 300 MG 1 TABLET DAILY
     Route: 048
  3. HUMIRA [Suspect]
     Indication: RHEUMATOID ARTHRITIS
     Route: 058
     Dates: start: 20110401
  4. BUMETANIDE [Concomitant]
     Indication: HYPERTENSION
     Dosage: 2 MG 1 TABLET DAILY
     Route: 048
  5. SINGULAIR [Concomitant]
     Indication: ASTHMA
     Route: 048
  6. ALBUTEROL [Concomitant]
     Indication: ASTHMA
     Dosage: MDI
     Route: 048

REACTIONS (3)
  - INFLAMMATION [None]
  - WEIGHT INCREASED [None]
  - SWELLING [None]
